FAERS Safety Report 5614057-3 (Version None)
Quarter: 2008Q1

REPORT INFORMATION
  Report Type: 
  Country: None (occurrence: None)
  Receive Date: 20080205
  Receipt Date: 20080123
  Transmission Date: 20080703
  Serious: Yes (Hospitalization)
  Sender: FDA-Public Use
  Company Number: GB-ROCHE-536429

PATIENT
  Age: 44 Year
  Sex: Female
  Weight: 95 kg

DRUGS (2)
  1. ORLISTAT [Suspect]
     Indication: WEIGHT CONTROL
     Route: 048
     Dates: start: 20071028, end: 20071119
  2. TAMSULOSIN HCL [Concomitant]
     Route: 048
     Dates: start: 20071115

REACTIONS (2)
  - NEPHROLITHIASIS [None]
  - RENAL COLIC [None]
